FAERS Safety Report 5294418-5 (Version None)
Quarter: 2007Q2

REPORT INFORMATION
  Report Type: 
  Country: None (occurrence: None)
  Receive Date: 20070409
  Receipt Date: 20070409
  Transmission Date: 20071010
  Serious: Yes (Other)
  Sender: FDA-Public Use
  Company Number: None

PATIENT
  Sex: Male

DRUGS (2)
  1. ACTONEL [Suspect]
     Indication: ARTHRITIS
     Dosage: 35 MG ONCE/WEEK PO
     Route: 048
  2. ACTONEL [Suspect]
     Indication: OSTEOPOROSIS
     Dosage: 35 MG ONCE/WEEK PO
     Route: 048

REACTIONS (1)
  - OSTEONECROSIS [None]
